FAERS Safety Report 10089275 (Version 1)
Quarter: 2014Q2

REPORT INFORMATION
  Report Type: Spontaneous
  Country: ES (occurrence: ES)
  Receive Date: 20140421
  Receipt Date: 20140421
  Transmission Date: 20141212
  Serious: Yes (Other)
  Sender: FDA-Public Use
  Company Number: PHHY2014ES044865

PATIENT
  Age: 50 Year
  Sex: Female

DRUGS (1)
  1. AFINITOR [Suspect]
     Indication: BREAST CANCER METASTATIC
     Dates: start: 201403

REACTIONS (4)
  - Psoriasis [Not Recovered/Not Resolved]
  - Eyelid oedema [Unknown]
  - Pruritus [Unknown]
  - Erythema [Unknown]
